FAERS Safety Report 18715029 (Version 1)
Quarter: 2021Q1

REPORT INFORMATION
  Report Type: Spontaneous
  Country: US (occurrence: US)
  Receive Date: 20210108
  Receipt Date: 20210108
  Transmission Date: 20210419
  Serious: Yes (Hospitalization, Other)
  Sender: FDA-Public Use
  Company Number: US-CIPLA LTD.-2021US00007

PATIENT

DRUGS (6)
  1. CINACALCET HYDROCHLORIDE. [Suspect]
     Active Substance: CINACALCET HYDROCHLORIDE
     Indication: HYPERCALCAEMIA
     Dosage: UNK, 4 DOSES
     Route: 065
  2. NATPARA (PARATHYROID HORMONE) [Suspect]
     Active Substance: PARATHYROID HORMONE
     Indication: POST PROCEDURAL HYPOPARATHYROIDISM
     Dosage: 50 MICROGRAM, UNK
     Route: 065
  3. NATPARA (PARATHYROID HORMONE) [Suspect]
     Active Substance: PARATHYROID HORMONE
     Dosage: 75 MICROGRAM (INCREASED DOSE), UNK
     Route: 065
  4. CALCIUM CARBONATE. [Suspect]
     Active Substance: CALCIUM CARBONATE
     Indication: MINERAL SUPPLEMENTATION
     Dosage: 1250 MILLIGRAM, TID
     Route: 065
  5. CALCIUM ACETATE. [Suspect]
     Active Substance: CALCIUM ACETATE
     Indication: MINERAL SUPPLEMENTATION
     Dosage: 2001 MILLIGRAM, TID
     Route: 065
  6. CALCITRIOL. [Suspect]
     Active Substance: CALCITRIOL
     Indication: VITAMIN SUPPLEMENTATION
     Dosage: 0.5 MICROGRAM, TID
     Route: 065

REACTIONS (5)
  - Hypocalcaemia [Unknown]
  - Product administration error [Unknown]
  - Hungry bone syndrome [Unknown]
  - Hypercalcaemia [Unknown]
  - Calciphylaxis [Unknown]
